FAERS Safety Report 18728937 (Version 1)
Quarter: 2021Q1

REPORT INFORMATION
  Report Type: Report from Study
  Country: US (occurrence: US)
  Receive Date: 20210112
  Receipt Date: 20210112
  Transmission Date: 20210419
  Serious: Yes (Other)
  Sender: FDA-Public Use
  Company Number: US-GILEAD-2021-0512286

PATIENT
  Age: 46 Year
  Sex: Female

DRUGS (2)
  1. TRIKAFTA [Concomitant]
     Active Substance: ELEXACAFTOR\IVACAFTOR\TEZACAFTOR
     Dosage: UNK
  2. AZTREONAM LYSINE [Suspect]
     Active Substance: AZTREONAM LYSINE
     Indication: CYSTIC FIBROSIS
     Dosage: 75 MG, TID, 28 DAYS ON, 28 DAYS OFF
     Route: 055

REACTIONS (1)
  - Cystic fibrosis [Recovered/Resolved]

NARRATIVE: CASE EVENT DATE: 202012
